FAERS Safety Report 9277364 (Version 1)
Quarter: 2013Q2

REPORT INFORMATION
  Report Type: Spontaneous
  Country: US (occurrence: None)
  Receive Date: 20130503
  Receipt Date: 20130503
  Transmission Date: 20140414
  Serious: Yes (Other)
  Sender: FDA-Public Use
  Company Number: None

PATIENT
  Age: 49 Year
  Sex: Female
  Weight: 58.97 kg

DRUGS (1)
  1. ACETAMINOPHEN W/CODEINE [Suspect]
     Indication: BACK PAIN
     Dosage: 1 TAB QD PO
     Route: 048
     Dates: start: 20130411

REACTIONS (4)
  - Palpitations [None]
  - Dyspnoea [None]
  - Anxiety [None]
  - Dizziness [None]
